FAERS Safety Report 7019551-9 (Version None)
Quarter: 2010Q3

REPORT INFORMATION
  Report Type: 
  Country: None (occurrence: None)
  Receive Date: 20100928
  Receipt Date: 20100928
  Transmission Date: 20110219
  Serious: Yes (Other)
  Sender: FDA-Public Use
  Company Number: None

PATIENT
  Age: 51 Year
  Sex: Female
  Weight: 85.7298 kg

DRUGS (4)
  1. OXYCONTIN [Suspect]
     Indication: BREAST CANCER METASTATIC
     Dosage: 100MG - 10 TABLETS AT 10MG. BID PO
     Route: 048
     Dates: start: 20100909, end: 20100912
  2. OXYCONTIN [Suspect]
     Indication: METASTASES TO BONE
     Dosage: 100MG - 10 TABLETS AT 10MG. BID PO
     Route: 048
     Dates: start: 20100909, end: 20100912
  3. OXYCONTIN [Suspect]
     Indication: METASTASES TO LIVER
     Dosage: 100MG - 10 TABLETS AT 10MG. BID PO
     Route: 048
     Dates: start: 20100909, end: 20100912
  4. OXYCONTIN [Suspect]
     Dosage: STOPPED 80 MG AND 10 MG BID PO
     Route: 048
     Dates: start: 20100909, end: 20100923

REACTIONS (10)
  - BONE PAIN [None]
  - BREAKTHROUGH PAIN [None]
  - CONSTIPATION [None]
  - CONVULSION [None]
  - DRUG INEFFECTIVE [None]
  - DRUG WITHDRAWAL SYNDROME [None]
  - NAUSEA [None]
  - PRODUCT FORMULATION ISSUE [None]
  - PYREXIA [None]
  - QUALITY OF LIFE DECREASED [None]
